FAERS Safety Report 21702839 (Version 1)
Quarter: 2022Q4

REPORT INFORMATION
  Report Type: Spontaneous
  Country: US (occurrence: US)
  Receive Date: 20221209
  Receipt Date: 20221209
  Transmission Date: 20230112
  Serious: No
  Sender: FDA-Public Use
  Company Number: US-BRISTOL-MYERS SQUIBB COMPANY-2022-150284

PATIENT
  Age: 69 Year
  Sex: Male
  Weight: 77.56 kg

DRUGS (1)
  1. REVLIMID [Suspect]
     Active Substance: LENALIDOMIDE
     Indication: Plasma cell myeloma
     Dosage: FREQ: D 1-21 Q 28 DAYS
     Route: 048
     Dates: start: 20201005

REACTIONS (3)
  - Blood urine present [Unknown]
  - Renal disorder [Unknown]
  - Laboratory test abnormal [Unknown]
